FAERS Safety Report 10866304 (Version 1)
Quarter: 2015Q1

REPORT INFORMATION
  Report Type: Spontaneous
  Country: GB (occurrence: GB)
  Receive Date: 20150225
  Receipt Date: 20150225
  Transmission Date: 20150721
  Serious: Yes (Disabling, Other)
  Sender: FDA-Public Use
  Company Number: GB-ALKEM-000873

PATIENT
  Age: 57 Year
  Sex: Female

DRUGS (10)
  1. WARFARIN [Concomitant]
     Active Substance: WARFARIN
  2. CANDESARTAN [Concomitant]
     Active Substance: CANDESARTAN
  3. QUETIAPINE/QUETIAPINE FUMARATE [Suspect]
     Active Substance: QUETIAPINE FUMARATE
     Indication: DEPRESSION
     Route: 048
  4. FLIXONASE AQEOUS [Concomitant]
  5. MAXALT [Concomitant]
     Active Substance: RIZATRIPTAN BENZOATE
     Dosage: TAKEN VERY RARELY. NONE TAKEN IN THIS PERIOD
  6. ZOPICLONE [Concomitant]
     Active Substance: ZOPICLONE
     Dosage: OCCASIONAL
  7. CO-DYDRAMOL [Concomitant]
     Active Substance: ACETAMINOPHEN\DIHYDROCODEINE
     Dosage: OCCASIONAL
  8. DIHYDROCODEINE [Concomitant]
     Active Substance: DIHYDROCODEINE
     Dosage: OCCASIONAL
  9. PROPRANOLOL [Concomitant]
     Active Substance: PROPRANOLOL\PROPRANOLOL HYDROCHLORIDE
  10. DULOXETINE/DULOXETINE HYDROCHLORIDE [Concomitant]

REACTIONS (8)
  - Confusional state [Recovered/Resolved]
  - Pyrexia [Recovered/Resolved]
  - Feeling hot [Recovered/Resolved]
  - Nausea [Unknown]
  - Chills [Recovered/Resolved]
  - Agitation [Unknown]
  - Hyperhidrosis [Recovered/Resolved]
  - Hypersomnia [Recovered/Resolved]

NARRATIVE: CASE EVENT DATE: 201411
